FAERS Safety Report 22742950 (Version 7)
Quarter: 2024Q1

REPORT INFORMATION
  Report Type: Report from Study
  Country: US (occurrence: US)
  Receive Date: 20230724
  Receipt Date: 20240119
  Transmission Date: 20240410
  Serious: No
  Sender: FDA-Public Use
  Company Number: US-002147023-NVSC2023US162359

PATIENT
  Sex: Male

DRUGS (1)
  1. KESIMPTA [Suspect]
     Active Substance: OFATUMUMAB
     Indication: Multiple sclerosis
     Dosage: 20 MG, QMO
     Route: 058
     Dates: start: 20230619

REACTIONS (7)
  - Influenza like illness [Recovered/Resolved]
  - Nerve compression [Unknown]
  - Hypoaesthesia [Unknown]
  - Asthenia [Unknown]
  - Vision blurred [Recovered/Resolved]
  - Paraesthesia [Unknown]
  - Influenza like illness [Recovered/Resolved]
